FAERS Safety Report 9852081 (Version 2)
Quarter: 2014Q1

REPORT INFORMATION
  Report Type: Spontaneous
  Country: US (occurrence: US)
  Receive Date: 20140129
  Receipt Date: 20140129
  Transmission Date: 20141002
  Serious: Yes (Other)
  Sender: FDA-Public Use
  Company Number: US-PFIZER INC-2014009783

PATIENT
  Age: 57 Year
  Sex: Female

DRUGS (11)
  1. LYRICA [Suspect]
     Indication: FIBROMYALGIA
     Dosage: 75 MG, 2X/DAY (75MG CAPS, 1PO BID)
     Route: 048
     Dates: start: 20140107, end: 20140115
  2. XANAX [Concomitant]
     Dosage: 0.5 MG, 1X/DAY (0.5MG TAB, 1 QHS)
     Dates: start: 20131118
  3. PRAVASTATIN SODIUM [Concomitant]
     Indication: HYPERLIPIDAEMIA
     Dosage: 60 MG, DAILY (20MG TAB 1 PO DAILY WITH ONE OF THE 40MG )
     Route: 048
     Dates: start: 20131121
  4. CLONAZEPAM [Concomitant]
     Dosage: 1 MG, 1X/DAY (1MG TAB, 1PO QDAY)
     Route: 048
     Dates: start: 20131118
  5. LEVOTHYROXINE SODIUM [Concomitant]
     Indication: HYPOTHYROIDISM
     Dosage: 100 UG, DAILY (100MCG, 1 PO DAILY)
     Route: 048
     Dates: start: 20131118
  6. ASPIRIN [Concomitant]
     Dosage: 325 MG, DAILY (325MG, 1 PO DAILY)
     Route: 048
     Dates: start: 20131118
  7. CYMBALTA [Concomitant]
     Indication: FIBROMYALGIA
     Dosage: 60 MG, 1X/DAY (60MG CPEP, 1PO QD)
     Route: 048
     Dates: start: 20140106
  8. CYMBALTA [Concomitant]
     Dosage: UNK
     Dates: start: 201311
  9. ALENDRONATE SODIUM [Concomitant]
     Indication: OSTEOPOROSIS
     Dosage: 70 MG, WEEKLY (1 PO ONCE/WEEK)
     Route: 048
     Dates: start: 20140107
  10. ERGOCALCIFEROL [Concomitant]
     Dosage: 50000 IU, WEEKLY (50000 UNIT, PO ONCE A WEEK)
     Route: 048
     Dates: start: 20140108
  11. VITAMIN D [Concomitant]
     Indication: VITAMIN D DEFICIENCY
     Dosage: UNK
     Dates: start: 20140108

REACTIONS (4)
  - Chest pain [Recovered/Resolved]
  - Abdominal pain [Recovered/Resolved]
  - Nausea [Recovered/Resolved]
  - Headache [Recovered/Resolved]
